FAERS Safety Report 6182928-8 (Version None)
Quarter: 2009Q2

REPORT INFORMATION
  Report Type: 
  Country: None (occurrence: None)
  Receive Date: 20090507
  Receipt Date: 20090429
  Transmission Date: 20091009
  Serious: Yes (Hospitalization)
  Sender: FDA-Public Use
  Company Number: US-ELI_LILLY_AND_COMPANY-US200904007007

PATIENT
  Sex: Female

DRUGS (1)
  1. FORTEO [Suspect]
     Dates: start: 20080101, end: 20090201

REACTIONS (4)
  - ANXIETY [None]
  - AORTIC STENOSIS [None]
  - AORTIC VALVE CALCIFICATION [None]
  - OXYGEN SATURATION DECREASED [None]
